FAERS Safety Report 7762650-4 (Version None)
Quarter: 2011Q3

REPORT INFORMATION
  Report Type: 
  Country: None (occurrence: None)
  Receive Date: 20110920
  Receipt Date: 20110913
  Transmission Date: 20111222
  Serious: Yes (Life-Threatening, Hospitalization, Other)
  Sender: FDA-Public Use
  Company Number: GR-JNJFOC-20110907041

PATIENT
  Age: 66 Year
  Sex: Male

DRUGS (2)
  1. INNOHEP [Concomitant]
     Dates: start: 20110825, end: 20110828
  2. XARELTO [Suspect]
     Indication: THROMBOSIS PROPHYLAXIS
     Route: 048
     Dates: start: 20110829

REACTIONS (1)
  - PULMONARY EMBOLISM [None]
